FAERS Safety Report 10611866 (Version 1)
Quarter: 2014Q4

REPORT INFORMATION
  Report Type: Spontaneous
  Country: US (occurrence: US)
  Receive Date: 20141126
  Receipt Date: 20141126
  Transmission Date: 20150529
  Serious: Yes (Other)
  Sender: FDA-Public Use
  Company Number: US-ROXANE LABORATORIES, INC.-2014-RO-01782RO

PATIENT
  Age: 74 Year
  Sex: Female

DRUGS (1)
  1. OXCARBAZEPINE. [Suspect]
     Active Substance: OXCARBAZEPINE
     Indication: TRIGEMINAL NEURALGIA
     Dosage: 1800 MG
     Route: 065

REACTIONS (4)
  - Hyponatraemia [Recovered/Resolved]
  - Dizziness [Unknown]
  - Somnolence [Unknown]
  - Inappropriate antidiuretic hormone secretion [Recovered/Resolved]
